FAERS Safety Report 5641008-8 (Version None)
Quarter: 2008Q1

REPORT INFORMATION
  Report Type: 
  Country: None (occurrence: None)
  Receive Date: 20080227
  Receipt Date: 20080221
  Transmission Date: 20080703
  Serious: Yes (Other)
  Sender: FDA-Public Use
  Company Number: DE-ALLERGAN-0802137US

PATIENT
  Sex: Female
  Weight: 94 kg

DRUGS (2)
  1. BOTOX [Suspect]
     Indication: HYPERTONIC BLADDER
     Dosage: 200 UNITS, UNK
     Route: 030
  2. RAMIPRIL [Concomitant]
     Indication: HYPERTENSION
     Dosage: 8 MG, UNK
     Route: 048

REACTIONS (1)
  - FACIAL PARESIS [None]
